FAERS Safety Report 23318682 (Version 1)
Quarter: 2023Q4

REPORT INFORMATION
  Report Type: Spontaneous
  Country: US (occurrence: US)
  Receive Date: 20231220
  Receipt Date: 20231220
  Transmission Date: 20240109
  Serious: No
  Sender: FDA-Public Use
  Company Number: US-BRISTOL-MYERS SQUIBB COMPANY-2023-184549

PATIENT
  Age: 50 Year
  Sex: Female

DRUGS (2)
  1. ABRAXANE [Suspect]
     Active Substance: PACLITAXEL
     Indication: Metastasis
     Dosage: DOSE : 100 MG | 156 MG;     FREQ : EVERY 3 WEEKS | WEEKLY
     Route: 042
  2. ABRAXANE [Suspect]
     Active Substance: PACLITAXEL
     Dosage: DOSE : 100 MG | 156 MG;     FREQ : EVERY 3 WEEKS | WEEKLY
     Route: 042

REACTIONS (1)
  - Product prescribing error [Unknown]
